FAERS Safety Report 10013018 (Version 3)
Quarter: 2014Q1

REPORT INFORMATION
  Report Type: Spontaneous
  Country: JP (occurrence: JP)
  Receive Date: 20140314
  Receipt Date: 20140321
  Transmission Date: 20141002
  Serious: Yes (Hospitalization)
  Sender: FDA-Public Use
  Company Number: JP-009507513-1402JPN006056

PATIENT
  Age: 55 Year
  Sex: Male
  Weight: 57 kg

DRUGS (10)
  1. JANUVIA TABLETS 100MG [Suspect]
     Indication: DIABETES MELLITUS
     Dosage: 100 MG, QD
     Route: 048
     Dates: start: 20121225, end: 20140203
  2. JANUVIA TABLETS 25MG [Suspect]
     Indication: DIABETES MELLITUS
     Dosage: 25 MG, QD, DIVIDED DOSE FRECUENCY UNKNONW
     Route: 048
     Dates: start: 20120501, end: 20120514
  3. JANUVIA TABLETS 50MG [Suspect]
     Indication: DIABETES MELLITUS
     Dosage: 50 MG, QD, DIVIDED DOSE FREQUENCY UNKNOWN
     Route: 048
     Dates: start: 20120515, end: 20120709
  4. JANUVIA TABLETS 12.5MG [Suspect]
     Indication: DIABETES MELLITUS
     Dosage: DIVIDED DOSE FREQUENCY UNKNOWN, 75 MG A DAY (1 TABLET FOR 25MG AND 1 TABLET FOR 50MG)
     Route: 048
     Dates: start: 20120710, end: 20131224
  5. JANUVIA TABLETS 12.5MG [Suspect]
     Dosage: DAILY DOSAGE UNKNOWN
     Route: 048
     Dates: start: 20140208, end: 20140208
  6. URSO [Concomitant]
     Dosage: 100 MG, UNK
     Route: 065
     Dates: end: 20140203
  7. LYRICA [Concomitant]
     Dosage: DAILY DOSE UNKNOWN
     Route: 065
     Dates: end: 20140203
  8. LANTUS [Concomitant]
     Indication: DIABETES MELLITUS
     Dosage: DAILY DOSE UNKNOWN, THE DOSE WAS INCREASED DUE TO THE PATIENT^S HIGH LEVEL OF BLOOD SUGAR
     Route: 065
     Dates: end: 20140203
  9. ATARAX P [Concomitant]
     Dosage: DAILY DOSE UNKNOWN
     Route: 065
     Dates: start: 20120307, end: 20121224
  10. ATARAX P [Concomitant]
     Dosage: TID, DAILY DOSE UNKNOWN
     Route: 065
     Dates: start: 20121225, end: 20140203

REACTIONS (4)
  - Drug eruption [Recovered/Resolved]
  - Blood pressure decreased [Recovered/Resolved]
  - Hypotension [Recovered/Resolved]
  - Urticaria [Unknown]
